FAERS Safety Report 9813166 (Version 1)
Quarter: 2014Q1

REPORT INFORMATION
  Report Type: Spontaneous
  Country: MY (occurrence: None)
  Receive Date: 20140109
  Receipt Date: 20140109
  Transmission Date: 20141002
  Serious: Yes (Other)
  Sender: FDA-Public Use
  Company Number: 2107849

PATIENT
  Age: 8 Month
  Sex: Male

DRUGS (1)
  1. VANCOMYCIN HYDROCHLORIDE [Suspect]
     Indication: SEPSIS
     Route: 042

REACTIONS (2)
  - Bronchospasm [None]
  - Erythema multiforme [None]
